FAERS Safety Report 21931820 (Version 1)
Quarter: 2023Q1

REPORT INFORMATION
  Report Type: Spontaneous
  Country: ES (occurrence: ES)
  Receive Date: 20230131
  Receipt Date: 20230131
  Transmission Date: 20230417
  Serious: Yes (Hospitalization)
  Sender: FDA-Public Use
  Company Number: None

PATIENT
  Age: 82 Year
  Sex: Male

DRUGS (10)
  1. QUETIAPINE [Suspect]
     Active Substance: QUETIAPINE
     Indication: Psychomotor hyperactivity
     Dosage: 100 MILLIGRAM, QD, 100.00 MG EVERY 24 H
     Route: 048
     Dates: start: 20220621, end: 20220727
  2. BISOPROLOL [Concomitant]
     Active Substance: BISOPROLOL
     Indication: Hypertension
     Dosage: UNK, 2.5 BREAKFAST DE, 2.8 TABLETS
     Route: 048
     Dates: start: 20220601
  3. RISPERIDONA ARISTO [Concomitant]
     Indication: Senile dementia
     Dosage: UNK, 1.0 MG BREAKFAST, 1 BOTTLE OF 100 ML,
     Route: 048
     Dates: start: 20220531
  4. ALPHAGAN P [Concomitant]
     Active Substance: BRIMONIDINE TARTRATE
     Indication: Glaucoma
     Dosage: UNK, 2.0 DROPS EVERY 12 H
     Dates: start: 20110429
  5. LANTUS SOLOSTAR [Concomitant]
     Active Substance: INSULIN GLARGINE
     Indication: Diabetes mellitus
     Dosage: UNK, 44.0 UI C/24 H (18)
     Route: 058
     Dates: start: 20120504
  6. ACETAMINOPHEN [Concomitant]
     Active Substance: ACETAMINOPHEN
     Indication: Spinal osteoarthritis
     Dosage: 1.0 G EVERY 8 HOURS
     Route: 048
     Dates: start: 20110429
  7. NOVORAPID [Concomitant]
     Active Substance: INSULIN ASPART
     Indication: Diabetes mellitus
     Dosage: UNK, 45.0 UI C/24 H
     Route: 058
     Dates: start: 20110429
  8. TAMSULOSIN HYDROCHLORIDE [Concomitant]
     Active Substance: TAMSULOSIN HYDROCHLORIDE
     Indication: Oedema
     Dosage: UNK, 0.4 MG EVERY 24 HOURS, 30 TABLETS
     Route: 048
     Dates: start: 20220601
  9. LOSARTAN [Concomitant]
     Active Substance: LOSARTAN
     Indication: Senile dementia
     Dosage: 50.0 MG BREAKFAST
     Route: 048
     Dates: start: 20220601
  10. ASPIRIN [Concomitant]
     Active Substance: ASPIRIN
     Indication: Senile dementia
     Dosage: UNK,100.0 MG LUNCH, 30 TABLETS
     Route: 048
     Dates: start: 20220601

REACTIONS (2)
  - Pyrexia [Recovered/Resolved]
  - Cognitive disorder [Recovered/Resolved]

NARRATIVE: CASE EVENT DATE: 20220724
